FAERS Safety Report 10149309 (Version 4)
Quarter: 2015Q1

REPORT INFORMATION
  Report Type: Spontaneous
  Country: US (occurrence: US)
  Receive Date: 20140502
  Receipt Date: 20150209
  Transmission Date: 20150720
  Serious: Yes (Other)
  Sender: FDA-Public Use
  Company Number: US-CELGENEUS-163-20785-14044743

PATIENT
  Age: 29 Year
  Sex: Male

DRUGS (6)
  1. THALOMID [Suspect]
     Active Substance: THALIDOMIDE
     Dosage: 50-100
     Route: 048
     Dates: start: 201106
  2. THALOMID [Suspect]
     Active Substance: THALIDOMIDE
     Route: 048
     Dates: start: 200907
  3. THALOMID [Suspect]
     Active Substance: THALIDOMIDE
     Route: 048
     Dates: start: 201302
  4. THALOMID [Suspect]
     Active Substance: THALIDOMIDE
     Route: 048
     Dates: start: 201308
  5. THALOMID [Suspect]
     Active Substance: THALIDOMIDE
     Route: 048
     Dates: start: 201209
  6. THALOMID [Suspect]
     Active Substance: THALIDOMIDE
     Indication: LEPROMATOUS LEPROSY
     Route: 048
     Dates: start: 200603

REACTIONS (1)
  - Infection [Unknown]

NARRATIVE: CASE EVENT DATE: 200712
